FAERS Safety Report 7675306-3 (Version None)
Quarter: 2011Q3

REPORT INFORMATION
  Report Type: 
  Country: None (occurrence: None)
  Receive Date: 20110810
  Receipt Date: 20110803
  Transmission Date: 20111222
  Serious: Yes (Life-Threatening)
  Sender: FDA-Public Use
  Company Number: FR-ELI_LILLY_AND_COMPANY-FR201106002776

PATIENT
  Sex: Male

DRUGS (3)
  1. ALIMTA [Suspect]
     Indication: BRONCHIAL CARCINOMA
     Dosage: 900 MG, UNKNOWN
     Route: 042
     Dates: start: 20101108
  2. FOLIC ACID [Concomitant]
     Dosage: 0.4 MG, QD
     Route: 048
     Dates: start: 20101101
  3. MEDROL [Concomitant]
     Dosage: 16 MG, BID
     Route: 048
     Dates: start: 20101107, end: 20101109

REACTIONS (6)
  - HYPERSENSITIVITY [None]
  - STENOTROPHOMONAS TEST POSITIVE [None]
  - PERIPHERAL VASCULAR DISORDER [None]
  - DYSPNOEA [None]
  - PYREXIA [None]
  - CYANOSIS [None]
